FAERS Safety Report 6171825-X (Version None)
Quarter: 2009Q2

REPORT INFORMATION
  Report Type: 
  Country: None (occurrence: None)
  Receive Date: 20090428
  Receipt Date: 20090428
  Transmission Date: 20091009
  Serious: Yes (Other)
  Sender: FDA-Public Use
  Company Number: None

PATIENT
  Sex: Male
  Weight: 66.8 kg

DRUGS (4)
  1. DROPERIDOL [Suspect]
     Indication: NAUSEA
  2. CHLORPROMAZINE [Suspect]
     Indication: AGITATION
  3. CHLORPROMAZINE [Suspect]
     Indication: HICCUPS
  4. HALOPERIDOL [Suspect]

REACTIONS (1)
  - ELECTROCARDIOGRAM QT PROLONGED [None]
